FAERS Safety Report 4614160-0 (Version None)
Quarter: 2005Q1

REPORT INFORMATION
  Report Type: 
  Country: None (occurrence: None)
  Receive Date: 20050316
  Receipt Date: 20050301
  Transmission Date: 20050727
  Serious: Yes (Hospitalization, Other)
  Sender: FDA-Public Use
  Company Number: JP-2004-029569

PATIENT
  Age: 23 Year
  Sex: Female
  Weight: 53 kg

DRUGS (7)
  1. BETAFERON (INTERFERON BETA-1B) INJECTION, 250 UG [Suspect]
     Indication: MULTIPLE SCLEROSIS
     Dosage: SEE IMAGE
     Route: 058
     Dates: start: 20030210, end: 20030214
  2. BETAFERON (INTERFERON BETA-1B) INJECTION, 250 UG [Suspect]
     Indication: MULTIPLE SCLEROSIS
     Dosage: SEE IMAGE
     Route: 058
     Dates: start: 20030216, end: 20030417
  3. .... [Concomitant]
  4. PREDNISOLONE [Concomitant]
  5. SELBEX (TEPRENONE) [Concomitant]
  6. ONE-ALPHA (ALFACALCIDOL) [Concomitant]
  7. FAMOTIDINE [Concomitant]

REACTIONS (13)
  - ALANINE AMINOTRANSFERASE INCREASED [None]
  - ASPARTATE AMINOTRANSFERASE INCREASED [None]
  - ASTHENIA [None]
  - AUTOANTIBODY POSITIVE [None]
  - CHRONIC INFLAMMATORY DEMYELINATING POLYRADICULONEUROPATHY [None]
  - CONDITION AGGRAVATED [None]
  - CSF PROTEIN INCREASED [None]
  - EXTENSOR PLANTAR RESPONSE [None]
  - HEPATOCELLULAR DAMAGE [None]
  - HYPERTHYROIDISM [None]
  - HYPOAESTHESIA [None]
  - HYPOREFLEXIA [None]
  - OPTIC ATROPHY [None]
